FAERS Safety Report 18576587 (Version 1)
Quarter: 2020Q4

REPORT INFORMATION
  Report Type: Spontaneous
  Country: GB (occurrence: GB)
  Receive Date: 20201203
  Receipt Date: 20201203
  Transmission Date: 20210114
  Serious: Yes (Death, Hospitalization)
  Sender: FDA-Public Use
  Company Number: GB-TEVA-2020-GB-1854288

PATIENT
  Age: 79 Year
  Sex: Female

DRUGS (8)
  1. WARFARIN [Suspect]
     Active Substance: WARFARIN
     Dosage: AS PER INTERNATIONAL NORMALISED RATIO (INR), 1 MG
  2. AMLODIPINE [Suspect]
     Active Substance: AMLODIPINE BESYLATE
     Dosage: 10 MG
  3. FUROSEMIDE. [Suspect]
     Active Substance: FUROSEMIDE
     Dosage: 80 MG
  4. BISOPROLOL [Suspect]
     Active Substance: BISOPROLOL
     Dosage: 10 MG
  5. CLOPIDOGREL [Suspect]
     Active Substance: CLOPIDOGREL BISULFATE
     Dosage: 75 MG
  6. FENOFIBRATE. [Suspect]
     Active Substance: FENOFIBRATE
     Dosage: 160 MG
  7. RAMIPRIL. [Suspect]
     Active Substance: RAMIPRIL
     Dosage: 10 MG
  8. LETROZOLE. [Suspect]
     Active Substance: LETROZOLE
     Dosage: 7.5 MG

REACTIONS (40)
  - Orthopnoea [Fatal]
  - Hepatic fibrosis [Fatal]
  - Hypotension [Fatal]
  - Taste disorder [Fatal]
  - Dyspnoea [Fatal]
  - Pulmonary oedema [Fatal]
  - Jaundice [Fatal]
  - Kidney fibrosis [Fatal]
  - Ascites [Fatal]
  - Hepatic necrosis [Fatal]
  - Pericardial effusion [Fatal]
  - Congestive hepatopathy [Fatal]
  - Haemolysis [Fatal]
  - Pleural effusion [Fatal]
  - Skin weeping [Fatal]
  - Nephrosclerosis [Fatal]
  - Aortic arteriosclerosis [Fatal]
  - Abnormal loss of weight [Fatal]
  - Hepatic steatosis [Fatal]
  - Mucosal dryness [Fatal]
  - Epistaxis [Fatal]
  - Asthenia [Fatal]
  - Nausea [Fatal]
  - Acute kidney injury [Fatal]
  - Decreased appetite [Fatal]
  - Petechiae [Fatal]
  - Dehydration [Fatal]
  - Hepatorenal failure [Fatal]
  - Confusional state [Fatal]
  - Lethargy [Fatal]
  - Dilatation ventricular [Fatal]
  - International normalised ratio increased [Fatal]
  - Urine output decreased [Fatal]
  - Cholestasis [Fatal]
  - Oedema peripheral [Fatal]
  - Thirst [Fatal]
  - Change of bowel habit [Fatal]
  - Abdominal distension [Fatal]
  - Ocular icterus [Fatal]
  - Sepsis [Fatal]

NARRATIVE: CASE EVENT DATE: 202002
